FAERS Safety Report 17329547 (Version 1)
Quarter: 2020Q1

REPORT INFORMATION
  Report Type: Spontaneous
  Country: US (occurrence: US)
  Receive Date: 20200127
  Receipt Date: 20200127
  Transmission Date: 20200409
  Serious: No
  Sender: FDA-Public Use
  Company Number: US-SA-2020SA017513

PATIENT
  Age: 78 Year
  Sex: Female

DRUGS (1)
  1. NASACORT ALLERGY 24HR [Suspect]
     Active Substance: TRIAMCINOLONE ACETONIDE
     Dosage: UNK UNK, 1X
     Route: 045
     Dates: start: 20200119, end: 20200120

REACTIONS (2)
  - Expired product administered [Unknown]
  - Oropharyngeal discomfort [Unknown]
